FAERS Safety Report 8972378 (Version 1)
Quarter: 2012Q4

REPORT INFORMATION
  Report Type: 
  Country: US (occurrence: US)
  Receive Date: 20121218
  Receipt Date: 20121218
  Transmission Date: 20130627
  Serious: Yes (Other)
  Sender: FDA-Public Use
  Company Number: CHPA2012US024976

PATIENT
  Age: 52 Year
  Sex: Female

DRUGS (1)
  1. 4 WAY SALINE MOISTURIZING MIST [Suspect]
     Indication: NASAL CONGESTION
     Dosage: Unk, Unk
     Route: 045

REACTIONS (4)
  - Nasal oedema [Recovered/Resolved]
  - Nasal septum deviation [Recovered/Resolved]
  - Sinus headache [Recovered/Resolved]
  - Off label use [Unknown]
